FAERS Safety Report 20354150 (Version 1)
Quarter: 2022Q1

REPORT INFORMATION
  Report Type: Spontaneous
  Country: US (occurrence: US)
  Receive Date: 20220120
  Receipt Date: 20220120
  Transmission Date: 20220423
  Serious: Yes (Other)
  Sender: FDA-Public Use
  Company Number: US-NOVOPROD-883017

PATIENT
  Age: 65 Year
  Sex: Female

DRUGS (9)
  1. LEVEMIR [Suspect]
     Active Substance: INSULIN DETEMIR
     Indication: Product used for unknown indication
     Dosage: UNK
     Route: 058
  2. NOVOLOG [Suspect]
     Active Substance: INSULIN ASPART
     Indication: Product used for unknown indication
     Dosage: UNK
     Route: 058
  3. OZEMPIC [Suspect]
     Active Substance: SEMAGLUTIDE
     Indication: Product used for unknown indication
     Dosage: 1.0 ONCE A WEEK
     Route: 058
  4. CAFFEINE\DIPHENHYDRAMINE HYDROCHLORIDE\ETHENZAMIDE\PHENACETIN\THIAMINE [Suspect]
     Active Substance: CAFFEINE\DIPHENHYDRAMINE HYDROCHLORIDE\ETHENZAMIDE\PHENACETIN\THIAMINE MONONITRATE
     Indication: Product used for unknown indication
     Dosage: 25 MG, TID
     Route: 048
  5. TENEX [Suspect]
     Active Substance: GUANFACINE HYDROCHLORIDE
     Indication: Product used for unknown indication
     Dosage: 2 MG, TID
     Route: 065
  6. PRAZOSIN HYDROCHLORIDE [Suspect]
     Active Substance: PRAZOSIN HYDROCHLORIDE
     Indication: Product used for unknown indication
     Dosage: 4 MG, TID
     Route: 065
  7. VASCEPA [Suspect]
     Active Substance: ICOSAPENT ETHYL
     Indication: Product used for unknown indication
     Dosage: 1 GM FOUR TIMES A DAY
     Route: 065
  8. METHYLEPHEDRINE HYDROCHLORIDE [Suspect]
     Active Substance: METHYLEPHEDRINE HYDROCHLORIDE
  9. TAURINE [Suspect]
     Active Substance: TAURINE

REACTIONS (10)
  - Breast cancer [Unknown]
  - Renal cancer [Unknown]
  - Fibromyalgia [Unknown]
  - Ovarian cancer [Unknown]
  - Uterine cancer [Unknown]
  - Blood glucose increased [Not Recovered/Not Resolved]
  - Hypertension [Not Recovered/Not Resolved]
  - COVID-19 [Not Recovered/Not Resolved]
  - Dry eye [Unknown]
  - Amblyopia [Unknown]

NARRATIVE: CASE EVENT DATE: 20211227
